FAERS Safety Report 20316518 (Version 2)
Quarter: 2022Q1

REPORT INFORMATION
  Report Type: Spontaneous
  Country: PT (occurrence: PT)
  Receive Date: 20220110
  Receipt Date: 20220301
  Transmission Date: 20220424
  Serious: Yes (Other)
  Sender: FDA-Public Use
  Company Number: PT-LUPIN PHARMACEUTICALS INC.-2021-26512

PATIENT
  Age: 34 Year
  Sex: Female

DRUGS (4)
  1. MISOPROSTOL [Suspect]
     Active Substance: MISOPROSTOL
     Indication: Labour induction
     Dosage: 50 MICROGRAM, QID (FOUR TIMES A DAY)
     Route: 065
  2. MAGNESIUM SULFATE [Suspect]
     Active Substance: MAGNESIUM SULFATE
     Indication: Prophylaxis
     Dosage: 4 GRAM (RECEIVED LOADING DOSE)
     Route: 065
  3. MAGNESIUM SULFATE [Suspect]
     Active Substance: MAGNESIUM SULFATE
     Dosage: 2 GRAM (RECEIVED MAINTENANCE DOSE UNTIL 24H AFTER LABOUR0
     Route: 065
  4. LABETALOL [Suspect]
     Active Substance: LABETALOL\LABETALOL HYDROCHLORIDE
     Indication: Blood pressure management
     Dosage: UNK
     Route: 042

REACTIONS (12)
  - Exposure during pregnancy [Unknown]
  - Premature delivery [Unknown]
  - Vaginal haemorrhage [Unknown]
  - Haemoglobin decreased [Not Recovered/Not Resolved]
  - Haematocrit decreased [Not Recovered/Not Resolved]
  - Abdominal pain upper [Unknown]
  - Hepatic rupture [Unknown]
  - Pneumonia [Unknown]
  - Atelectasis [Unknown]
  - Pleural effusion [Unknown]
  - Haematoma [Unknown]
  - Off label use [Unknown]
